FAERS Safety Report 9835912 (Version 1)
Quarter: 2014Q1

REPORT INFORMATION
  Report Type: Spontaneous
  Country: US (occurrence: US)
  Receive Date: 20140122
  Receipt Date: 20140122
  Transmission Date: 20141002
  Serious: Yes (Other)
  Sender: FDA-Public Use
  Company Number: CHPA2014US000703

PATIENT
  Age: 75 Year
  Sex: Female

DRUGS (5)
  1. EXCEDRIN EXTRA STRENGTH [Suspect]
     Indication: HEADACHE
     Dosage: 1-2 PILLS, PRN
     Route: 048
  2. EXCEDRIN EXTRA STRENGTH [Suspect]
     Dosage: 2 PILLS, PRN
  3. NODOZ [Suspect]
     Indication: SUPPLEMENTATION THERAPY
     Dosage: 1 TO 2 DF, PRN
     Route: 048
  4. NODOZ [Suspect]
     Indication: FEELING ABNORMAL
  5. NODOZ [Suspect]
     Indication: OFF LABEL USE

REACTIONS (4)
  - Drug dependence [Not Recovered/Not Resolved]
  - Abdominal discomfort [Not Recovered/Not Resolved]
  - Incorrect dose administered [Unknown]
  - Expired drug administered [Unknown]
